FAERS Safety Report 4549517-X (Version None)
Quarter: 2005Q1

REPORT INFORMATION
  Report Type: 
  Country: None (occurrence: None)
  Receive Date: 20050111
  Receipt Date: 20020716
  Transmission Date: 20050727
  Serious: Yes (Hospitalization)
  Sender: FDA-Public Use
  Company Number: GB-ROCHE-317316

PATIENT
  Age: 32 Year
  Sex: Female
  Weight: 66.1 kg

DRUGS (2)
  1. ROCALTROL [Suspect]
     Route: 065
     Dates: start: 20020707, end: 20020709
  2. FLUOXETINE [Suspect]
     Indication: DRUG USE FOR UNKNOWN INDICATION
     Dosage: IN THE MORNING.
     Route: 048

REACTIONS (4)
  - ABORTION SPONTANEOUS [None]
  - DRUG EXPOSURE DURING PREGNANCY [None]
  - ECTOPIC PREGNANCY [None]
  - UNINTENDED PREGNANCY [None]
